FAERS Safety Report 23966197 (Version 1)
Quarter: 2024Q2

REPORT INFORMATION
  Report Type: Spontaneous
  Country: PT (occurrence: PT)
  Receive Date: 20240612
  Receipt Date: 20240612
  Transmission Date: 20240715
  Serious: Yes (Other)
  Sender: FDA-Public Use
  Company Number: PT-SUN PHARMACEUTICAL INDUSTRIES LTD-2024R1-448795

PATIENT
  Age: 21 Year
  Sex: Male

DRUGS (2)
  1. DEFLAZACORT [Suspect]
     Active Substance: DEFLAZACORT
     Indication: Progressive diaphyseal dysplasia
     Dosage: 1 MILLIGRAM/KILOGRAM, DAILY
     Route: 065
  2. DEFLAZACORT [Suspect]
     Active Substance: DEFLAZACORT
     Dosage: UNK (REDUCED TO THE MINIMUM TOLERATED DOSE)
     Route: 065

REACTIONS (1)
  - Osteoporosis [Unknown]
